FAERS Safety Report 16058600 (Version 4)
Quarter: 2020Q4

REPORT INFORMATION
  Report Type: Spontaneous
  Country: FR (occurrence: FR)
  Receive Date: 20190311
  Receipt Date: 20201125
  Transmission Date: 20210113
  Serious: Yes (Other)
  Sender: FDA-Public Use
  Company Number: FR-JNJFOC-20190302983

PATIENT
  Age: 49 Year
  Sex: Male
  Weight: 75 kg

DRUGS (7)
  1. CALCIUM+VIT D [Concomitant]
     Route: 048
     Dates: start: 2015
  2. DELURSAN [Concomitant]
     Active Substance: URSODIOL
     Indication: CHOLANGITIS SCLEROSING
     Dates: start: 201810
  3. STELARA [Suspect]
     Active Substance: USTEKINUMAB
     Indication: CROHN^S DISEASE
     Dosage: INFUSION OF 390 MG ON 04-AUG-2018 (DAY 1) AND THEN SC INJECTION OF 90 MG EVERY 12 WEEKS;
     Route: 042
     Dates: start: 20180804
  4. STELARA [Suspect]
     Active Substance: USTEKINUMAB
     Route: 058
  5. CORTANCYL [Suspect]
     Active Substance: PREDNISONE
     Route: 065
  6. CORTANCYL [Suspect]
     Active Substance: PREDNISONE
     Route: 065
  7. CORTANCYL [Suspect]
     Active Substance: PREDNISONE
     Indication: CROHN^S DISEASE
     Route: 065
     Dates: start: 2012

REACTIONS (1)
  - Chorioretinopathy [Not Recovered/Not Resolved]

NARRATIVE: CASE EVENT DATE: 20190114
